FAERS Safety Report 17419524 (Version 1)
Quarter: 2020Q1

REPORT INFORMATION
  Report Type: Spontaneous
  Country: HU (occurrence: HU)
  Receive Date: 20200214
  Receipt Date: 20200214
  Transmission Date: 20200409
  Serious: Yes (Hospitalization, Other)
  Sender: FDA-Public Use
  Company Number: HU-ACCORD-172535

PATIENT
  Sex: Male

DRUGS (3)
  1. BLEOMYCIN [Suspect]
     Active Substance: BLEOMYCIN SULFATE
     Indication: TESTIS CANCER
     Dosage: BEP CHEMOTHERAPY
     Route: 065
     Dates: start: 201905
  2. CISPLATIN. [Suspect]
     Active Substance: CISPLATIN
     Indication: TESTIS CANCER
     Dosage: BEP CHEMOTHERAPY, PLATINUM
     Route: 065
     Dates: start: 201905
  3. ETOPOSIDE. [Suspect]
     Active Substance: ETOPOSIDE
     Indication: TESTIS CANCER
     Dosage: BEP CHEMOTHERAPY
     Route: 065
     Dates: start: 201905

REACTIONS (4)
  - Abscess limb [Recovering/Resolving]
  - Pyrexia [Recovering/Resolving]
  - Staphylococcal infection [Recovering/Resolving]
  - Myalgia [Recovering/Resolving]
